FAERS Safety Report 7633535-9 (Version None)
Quarter: 2011Q3

REPORT INFORMATION
  Report Type: 
  Country: None (occurrence: None)
  Receive Date: 20110725
  Receipt Date: 20110719
  Transmission Date: 20111222
  Serious: Yes (Hospitalization)
  Sender: FDA-Public Use
  Company Number: DE-PFIZER INC-2011138154

PATIENT
  Sex: Male

DRUGS (6)
  1. HYDROCHLOROTHIAZIDE [Concomitant]
     Dosage: 1 DF, 1X/DAY
  2. NITRENDIPINE [Concomitant]
     Dosage: 1 DF, 1X/DAY
  3. SUTENT [Suspect]
     Dosage: UNK
     Dates: start: 20101025, end: 20110617
  4. RAMIPRIL [Concomitant]
     Dosage: 2.5/DAY
  5. TAMSULOSIN [Concomitant]
     Dosage: 1 DF, 1X/DAY
  6. METOPROLOL SUCCINATE [Concomitant]
     Dosage: 1/2 DF/DAY

REACTIONS (1)
  - DIVERTICULUM INTESTINAL HAEMORRHAGIC [None]
